FAERS Safety Report 9452930 (Version 2)
Quarter: 2013Q3

REPORT INFORMATION
  Report Type: Report from Study
  Country: TR (occurrence: TR)
  Receive Date: 20130812
  Receipt Date: 20130815
  Transmission Date: 20140515
  Serious: Yes (Death)
  Sender: FDA-Public Use
  Company Number: TR-ROCHE-1260178

PATIENT
  Sex: 0

DRUGS (2)
  1. ALTEPLASE [Suspect]
     Indication: AORTIC THROMBOSIS
     Dosage: 0.01-0.5 MG/KG/H; 3-66 HOUR
     Route: 065
  2. HEPARIN SODIUM [Suspect]
     Indication: AORTIC THROMBOSIS
     Route: 065

REACTIONS (1)
  - Sepsis [Fatal]
